FAERS Safety Report 5019344-8 (Version None)
Quarter: 2006Q2

REPORT INFORMATION
  Report Type: 
  Country: None (occurrence: None)
  Receive Date: 20060606
  Receipt Date: 20060525
  Transmission Date: 20061013
  Serious: Yes (Other)
  Sender: FDA-Public Use
  Company Number: US-ROCHE-449768

PATIENT
  Sex: Male

DRUGS (3)
  1. ACCUTANE [Suspect]
     Dates: start: 19980212, end: 19980317
  2. ACCUTANE [Suspect]
     Dosage: INDICATION REPORTED AS CYSTIC ACNE.
     Dates: start: 19980318, end: 19980719
  3. ANTIBIOTIC NOS [Concomitant]

REACTIONS (3)
  - DRUG EXPOSURE DURING PREGNANCY [None]
  - LIVE BIRTH [None]
  - NO ADVERSE EFFECT [None]
